FAERS Safety Report 22645828 (Version 5)
Quarter: 2024Q2

REPORT INFORMATION
  Report Type: Spontaneous
  Country: JP (occurrence: JP)
  Receive Date: 20230627
  Receipt Date: 20240506
  Transmission Date: 20240716
  Serious: Yes (Life-Threatening, Hospitalization, Other)
  Sender: FDA-Public Use
  Company Number: JP-TAKEDA-2023TJP008213

PATIENT
  Age: 35 Year
  Sex: Female
  Weight: 47 kg

DRUGS (4)
  1. LEUPLIN [Suspect]
     Active Substance: LEUPROLIDE ACETATE
     Indication: Uterine leiomyoma
     Dosage: 1.88 MILLIGRAM, Q4WEEKS ?1ST DOSE
     Route: 058
     Dates: start: 20230221, end: 20230221
  2. LEUPLIN [Suspect]
     Active Substance: LEUPROLIDE ACETATE
     Dosage: 2ND DOSE
     Route: 058
     Dates: start: 20230328, end: 20230328
  3. LEUPLIN [Suspect]
     Active Substance: LEUPROLIDE ACETATE
     Dosage: 3RD DOSE
     Route: 058
     Dates: start: 20230425, end: 20230425
  4. LEUPLIN [Suspect]
     Active Substance: LEUPROLIDE ACETATE
     Dosage: 4TH DOSE
     Route: 058
     Dates: start: 20230523, end: 20230523

REACTIONS (2)
  - Uterine haemorrhage [Recovered/Resolved]
  - Uterine leiomyoma [Recovered/Resolved]

NARRATIVE: CASE EVENT DATE: 20230528
